FAERS Safety Report 5580838-8 (Version None)
Quarter: 2008Q1

REPORT INFORMATION
  Report Type: 
  Country: None (occurrence: None)
  Receive Date: 20080103
  Receipt Date: 20071026
  Transmission Date: 20080703
  Serious: No
  Sender: FDA-Public Use
  Company Number: US-BOEHRINGER INGELHEIM PHARMACEUTICALS, INC.-2006-BP-06273BP

PATIENT
  Sex: Male

DRUGS (93)
  1. MIRAPEX [Suspect]
     Indication: RESTLESS LEGS SYNDROME
     Route: 048
     Dates: start: 19990301, end: 20050715
  2. REQUIP [Concomitant]
     Indication: RESTLESS LEGS SYNDROME
     Route: 048
     Dates: start: 20050615, end: 20050825
  3. PROZAC [Concomitant]
     Dates: start: 20020202
  4. PAXIL [Concomitant]
     Indication: DEPRESSION
     Dates: start: 20020401, end: 20020910
  5. PAXIL [Concomitant]
     Dates: start: 20020401
  6. ALLEGRA [Concomitant]
     Dates: start: 20010301
  7. ALLEGRA [Concomitant]
     Dates: start: 20040101
  8. PERCOCET [Concomitant]
     Dates: start: 20050801
  9. NIASPAN [Concomitant]
     Dates: start: 20020328
  10. K-DUR 10 [Concomitant]
     Route: 048
  11. HYZAAR [Concomitant]
     Dates: start: 20020201
  12. NEXIUM [Concomitant]
     Indication: GASTROOESOPHAGEAL REFLUX DISEASE
     Dates: start: 20020101
  13. FOLATE [Concomitant]
     Indication: BLOOD HOMOCYSTEINE INCREASED
     Dates: start: 20020626
  14. PRAVACHOL [Concomitant]
     Dates: start: 20020620
  15. ASCORBIC ACID [Concomitant]
  16. VITAMIN E [Concomitant]
  17. ASPIRIN [Concomitant]
     Route: 048
  18. SERZONE [Concomitant]
     Indication: DEPRESSION
     Dates: start: 20020901, end: 20050715
  19. HYDROCHLOROTHIAZIDE [Concomitant]
     Indication: HYPERTENSION
     Dates: start: 20031104
  20. KLONOPIN [Concomitant]
     Indication: RESTLESS LEGS SYNDROME
     Route: 048
     Dates: start: 20040414, end: 20050825
  21. MOBIC [Concomitant]
     Indication: PLANTAR FASCIITIS
     Dates: start: 20040224
  22. TESTOSTERONE [Concomitant]
     Indication: BLOOD TESTOSTERONE DECREASED
     Route: 030
  23. LASIX [Concomitant]
     Dates: start: 20040828
  24. GLUCOPHAGE [Concomitant]
     Indication: DIABETES MELLITUS
     Dates: start: 20040617, end: 20040826
  25. SYNTHROID [Concomitant]
     Indication: AUTOIMMUNE THYROIDITIS
     Dates: start: 20040601
  26. SYNTHROID [Concomitant]
     Indication: HYPOTHYROIDISM
  27. PLAVIX [Concomitant]
     Dates: start: 20050418
  28. ZOCOR [Concomitant]
     Dates: end: 20050601
  29. VYTORIN [Concomitant]
     Dates: start: 20050601, end: 20060516
  30. TOPROL-XL [Concomitant]
     Dates: start: 20060516
  31. ZETIA [Concomitant]
     Dates: start: 20030401
  32. FISH OIL [Concomitant]
     Dates: start: 20060501
  33. CLOMIPRAMINE HCL [Concomitant]
     Indication: RESTLESS LEGS SYNDROME
     Dates: start: 20050715, end: 20050831
  34. NEURONTIN [Concomitant]
     Dates: start: 20050728
  35. LUNESTA [Concomitant]
     Route: 048
     Dates: start: 20050831
  36. WELCHOL [Concomitant]
     Route: 048
     Dates: start: 20050901
  37. COUMADIN [Concomitant]
     Dates: end: 20050101
  38. EFFEXOR XR [Concomitant]
     Indication: DEPRESSION
     Route: 048
     Dates: start: 20060220, end: 20060601
  39. LIPITOR [Concomitant]
     Indication: BLOOD CHOLESTEROL INCREASED
     Dates: start: 20000710, end: 20020122
  40. VALTREX [Concomitant]
  41. ULTRAM [Concomitant]
  42. PREVACID [Concomitant]
  43. FIORICET [Concomitant]
     Dates: start: 19990701
  44. ZESTRIL [Concomitant]
     Dates: start: 20000801
  45. ALTACE [Concomitant]
     Dates: start: 20020101
  46. BUMETANIDE [Concomitant]
  47. HEMORRHOIDAL-HC [Concomitant]
     Dates: start: 20030101
  48. LESCOL XL [Concomitant]
     Dates: start: 20040101
  49. DEPO-TESTOSTERONE [Concomitant]
     Route: 030
     Dates: start: 20040501
  50. CLOTRIMAZOL/BETAMETHASONE [Concomitant]
     Dates: start: 20040901
  51. CLOMID [Concomitant]
  52. GARLIC [Concomitant]
  53. TYLENOL [Concomitant]
  54. DITTMAN [Concomitant]
  55. IMITREX [Concomitant]
     Route: 045
     Dates: start: 20001001
  56. KLOR-CON [Concomitant]
  57. TIGAN [Concomitant]
     Dates: start: 20020701
  58. ZOFRAN [Concomitant]
     Dates: start: 20020127
  59. PRINIVIL [Concomitant]
     Dates: start: 20001102
  60. CDP/CLIDINIUM [Concomitant]
     Dates: start: 20020724
  61. ACETAMINOPHEN AND HYDROCODONE BITARTRATE [Concomitant]
     Dates: start: 20050301
  62. BUMETANIDE [Concomitant]
     Dates: start: 20021213
  63. HYDROMET [Concomitant]
     Dates: start: 20030217
  64. FLONASE [Concomitant]
     Dates: start: 20030217
  65. METRONIDAZOLE [Concomitant]
     Dates: start: 20020701
  66. VIAGRA [Concomitant]
     Dates: start: 20030801
  67. LIDOCAINE [Concomitant]
     Dates: start: 20030901
  68. HYDROCORTISONE [Concomitant]
     Dates: start: 20031001
  69. ANALPRAM-HC [Concomitant]
     Dates: start: 20031201
  70. BIAXIN XL [Concomitant]
     Dates: start: 20040201
  71. AMARYL [Concomitant]
     Dates: start: 20040828
  72. PREDNISONE [Concomitant]
     Dates: start: 20041230
  73. LAMISIL [Concomitant]
     Dates: start: 20050122
  74. BACTRIM DS [Concomitant]
     Dates: start: 20050222
  75. APAP W/ CODEINE [Concomitant]
     Dates: start: 20050728
  76. PERCOCET [Concomitant]
     Dates: start: 20050823
  77. IBUPROFEN [Concomitant]
     Dates: start: 20061018
  78. TESSALON [Concomitant]
     Route: 048
  79. DEPAKOTE [Concomitant]
     Indication: ARTHRALGIA
  80. ABILIFY [Concomitant]
     Route: 048
  81. CAFERGOT [Concomitant]
     Indication: HEADACHE
  82. METFORMIN ER [Concomitant]
     Dates: start: 20040601
  83. VICOPROFEN [Concomitant]
     Dates: start: 20020101
  84. DICLOFENAC SODIUM [Concomitant]
     Dates: start: 20020201
  85. PENLAC [Concomitant]
     Dates: start: 20020601
  86. LORTAB [Concomitant]
     Dates: start: 20060401
  87. LEVITRA [Concomitant]
     Dates: start: 20060801
  88. UROCIT-K [Concomitant]
     Dates: start: 20060101
  89. NORVASC [Concomitant]
     Dates: start: 20061001
  90. HYDROXYZINE HCL [Concomitant]
     Dates: start: 20061201
  91. URELLE [Concomitant]
     Dates: start: 20061201
  92. METHYLPRED [Concomitant]
     Dates: start: 20070401
  93. TRAMADOL HCL [Concomitant]
     Dates: start: 20070401

REACTIONS (6)
  - DEPRESSION [None]
  - EMOTIONAL DISTRESS [None]
  - HYPERSEXUALITY [None]
  - OBSESSIVE-COMPULSIVE PERSONALITY DISORDER [None]
  - PATHOLOGICAL GAMBLING [None]
  - SUICIDAL IDEATION [None]
